FAERS Safety Report 8344314-1 (Version None)
Quarter: 2012Q2

REPORT INFORMATION
  Report Type: 
  Country: None (occurrence: None)
  Receive Date: 20120508
  Receipt Date: 20120503
  Transmission Date: 20120825
  Serious: Yes (Hospitalization)
  Sender: FDA-Public Use
  Company Number: SI-PFIZER INC-2012079028

PATIENT
  Age: 84 Year
  Sex: Female

DRUGS (24)
  1. CARDURA [Suspect]
     Indication: MYOCARDIAL ISCHAEMIA
     Route: 048
     Dates: start: 20110802, end: 20120111
  2. ALDACTONE [Suspect]
  3. INDAPAMIDE/PERINDOPRIL ARGININE [Suspect]
     Indication: ATRIAL FIBRILLATION
  4. BISOPROLOL FUMARATE [Suspect]
     Indication: HYPERTENSION
     Dosage: 10 MG, UNK
     Route: 048
  5. TORSEMIDE [Suspect]
     Indication: MYOCARDIAL ISCHAEMIA
  6. METFORMIN [Concomitant]
  7. LERCANIDIPINE [Suspect]
     Indication: MYOCARDIAL ISCHAEMIA
  8. CARDURA [Suspect]
     Indication: ATRIAL FIBRILLATION
  9. ALDACTONE [Suspect]
     Indication: HYPERTENSION
     Dosage: 25 MG, UNK
     Route: 048
  10. INDAPAMIDE/PERINDOPRIL ARGININE [Suspect]
     Indication: MYOCARDIAL ISCHAEMIA
  11. BISOPROLOL FUMARATE [Suspect]
     Indication: MYOCARDIAL ISCHAEMIA
     Route: 048
  12. LERCANIDIPINE [Suspect]
     Indication: ATRIAL FIBRILLATION
  13. ASPIRIN [Concomitant]
  14. GLUCOTROL [Concomitant]
  15. ALDACTONE [Suspect]
     Indication: MYOCARDIAL ISCHAEMIA
     Route: 048
  16. INDAPAMIDE/PERINDOPRIL ARGININE [Suspect]
     Indication: HYPERTENSION
     Dosage: [PERINDOPRIL 8 MG/ INDAPAMIDE 2.5 MG], UNK
     Route: 048
  17. ATORVASTATIN [Concomitant]
  18. ALDACTONE [Suspect]
     Indication: ATRIAL FIBRILLATION
  19. BISOPROLOL FUMARATE [Suspect]
     Indication: ATRIAL FIBRILLATION
  20. TORSEMIDE [Suspect]
     Indication: ATRIAL FIBRILLATION
  21. PLAVIX [Concomitant]
  22. CARDURA [Suspect]
     Indication: HYPERTENSION
     Dosage: 8 MG, UNK
     Route: 048
     Dates: start: 20110802, end: 20120111
  23. TORSEMIDE [Suspect]
     Indication: HYPERTENSION
     Dosage: 10 MG, UNK
     Route: 048
  24. LERCANIDIPINE [Suspect]
     Indication: HYPERTENSION
     Dosage: 20 MG, UNK
     Route: 048
     Dates: start: 20101001, end: 20110701

REACTIONS (2)
  - HYPOTENSION [None]
  - LOSS OF CONSCIOUSNESS [None]
